FAERS Safety Report 6529442-5 (Version None)
Quarter: 2010Q1

REPORT INFORMATION
  Report Type: 
  Country: None (occurrence: None)
  Receive Date: 20100104
  Receipt Date: 20091215
  Transmission Date: 20100710
  Serious: Yes (Other)
  Sender: FDA-Public Use
  Company Number: FR-2009-2621

PATIENT
  Sex: Female

DRUGS (2)
  1. NAVELBINE [Suspect]
     Indication: BREAST CANCER
  2. NAVELBINE [Suspect]
     Indication: BREAST CANCER

REACTIONS (1)
  - HEPATIC STEATOSIS [None]
